FAERS Safety Report 4810401-5 (Version None)
Quarter: 2005Q4

REPORT INFORMATION
  Report Type: 
  Country: None (occurrence: None)
  Receive Date: 20051024
  Receipt Date: 20051014
  Transmission Date: 20060501
  Serious: Yes (Hospitalization, Other)
  Sender: FDA-Public Use
  Company Number: KII-2005-0019113

PATIENT
  Age: 49 Year
  Sex: Male

DRUGS (2)
  1. OXYCONTIN [Suspect]
     Dosage: ORAL
     Route: 048
  2. BENZODIAZEPINE DERIVATIVES [Suspect]

REACTIONS (5)
  - BLOOD PRESSURE DECREASED [None]
  - INTENTIONAL OVERDOSE [None]
  - RHABDOMYOLYSIS [None]
  - SOMNOLENCE [None]
  - SUICIDE ATTEMPT [None]
